FAERS Safety Report 8247690-3 (Version None)
Quarter: 2012Q1

REPORT INFORMATION
  Report Type: 
  Country: None (occurrence: None)
  Receive Date: 20120330
  Receipt Date: 20120326
  Transmission Date: 20120608
  Serious: No
  Sender: FDA-Public Use
  Company Number: US-PFIZER INC-2012078244

PATIENT
  Sex: Female

DRUGS (3)
  1. PRISTIQ [Suspect]
     Dosage: 50MG, TOOK FOR 3 MONTH
  2. PRISTIQ [Suspect]
     Dosage: 50MG, UNK
  3. PRISTIQ [Suspect]
     Dosage: 100MG, FOR TWO WEEKS

REACTIONS (5)
  - ABNORMAL DREAMS [None]
  - DIZZINESS [None]
  - MALAISE [None]
  - NAUSEA [None]
  - ANXIETY [None]
